FAERS Safety Report 11776327 (Version 1)
Quarter: 2015Q4

REPORT INFORMATION
  Report Type: Spontaneous
  Country: US (occurrence: US)
  Receive Date: 20151125
  Receipt Date: 20151125
  Transmission Date: 20160304
  Serious: No
  Sender: FDA-Public Use
  Company Number: US-009507513-1511USA013433

PATIENT
  Sex: Female
  Weight: 62.13 kg

DRUGS (7)
  1. SUTENT [Concomitant]
     Active Substance: SUNITINIB MALATE
     Dosage: 28 DAYS ON/14 DAYS OFF
     Dates: start: 20150826
  2. COZAAR [Suspect]
     Active Substance: LOSARTAN POTASSIUM
     Route: 048
  3. GLIPIZIDE. [Concomitant]
     Active Substance: GLIPIZIDE
  4. ZOCOR [Suspect]
     Active Substance: SIMVASTATIN
     Route: 048
  5. LEVEMIR [Concomitant]
     Active Substance: INSULIN DETEMIR
  6. AMLODIPINE [Concomitant]
     Active Substance: AMLODIPINE BESYLATE
  7. LOVENOX [Concomitant]
     Active Substance: ENOXAPARIN SODIUM

REACTIONS (4)
  - Mouth haemorrhage [Unknown]
  - Dizziness [Unknown]
  - Drug hypersensitivity [Unknown]
  - Nausea [Unknown]

NARRATIVE: CASE EVENT DATE: 2015
